FAERS Safety Report 17261170 (Version 1)
Quarter: 2020Q1

REPORT INFORMATION
  Report Type: Spontaneous
  Country: SG (occurrence: SG)
  Receive Date: 20200113
  Receipt Date: 20200113
  Transmission Date: 20200409
  Serious: Yes (Hospitalization)
  Sender: FDA-Public Use
  Company Number: SG-GLAXOSMITHKLINE-SG2020APC005020

PATIENT

DRUGS (2)
  1. ZINNAT [Suspect]
     Active Substance: CEFUROXIME
     Indication: POSTOPERATIVE CARE
     Dosage: 250 MG, BID
     Route: 048
     Dates: start: 20191129, end: 20191130
  2. ARCOXIA [Suspect]
     Active Substance: ETORICOXIB
     Indication: PAIN
     Dosage: 120 MG, QD
     Route: 048
     Dates: start: 20191130, end: 20191130

REACTIONS (3)
  - Swelling [Recovered/Resolved]
  - Wheezing [Recovered/Resolved]
  - Urticaria [Recovered/Resolved]

NARRATIVE: CASE EVENT DATE: 20191130
